APPROVED DRUG PRODUCT: TRIAMTERENE AND HYDROCHLOROTHIAZIDE
Active Ingredient: HYDROCHLOROTHIAZIDE; TRIAMTERENE
Strength: 50MG;75MG
Dosage Form/Route: TABLET;ORAL
Application: A072011 | Product #001 | TE Code: AB
Applicant: CHARTWELL RX SCIENCES LLC
Approved: Jun 17, 1988 | RLD: No | RS: No | Type: RX